FAERS Safety Report 17780696 (Version 1)
Quarter: 2020Q2

REPORT INFORMATION
  Report Type: Spontaneous
  Country: US (occurrence: US)
  Receive Date: 20200513
  Receipt Date: 20200513
  Transmission Date: 20200714
  Serious: Yes (Hospitalization)
  Sender: FDA-Public Use
  Company Number: None

PATIENT
  Age: 66 Year
  Sex: Male

DRUGS (2)
  1. RIVAROXABAN (RIVAROXABAN 2.5MG TAB ) [Suspect]
     Active Substance: RIVAROXABAN
     Route: 048
     Dates: start: 20200228, end: 20200317
  2. TICAGRELOR (TICAGRELOR 90MG TAB) [Suspect]
     Active Substance: TICAGRELOR
     Route: 048

REACTIONS (4)
  - Wound [None]
  - Haemorrhage [None]
  - Incision site haemorrhage [None]
  - Muscle graft [None]

NARRATIVE: CASE EVENT DATE: 20200317
